FAERS Safety Report 18456203 (Version 2)
Quarter: 2020Q4

REPORT INFORMATION
  Report Type: Spontaneous
  Country: US (occurrence: US)
  Receive Date: 20201103
  Receipt Date: 20201112
  Transmission Date: 20210114
  Serious: Yes (Hospitalization)
  Sender: FDA-Public Use
  Company Number: US-ELI_LILLY_AND_COMPANY-US202011000628

PATIENT
  Age: 76 Year
  Sex: Female

DRUGS (2)
  1. TRULICITY [Suspect]
     Active Substance: DULAGLUTIDE
     Indication: TYPE 2 DIABETES MELLITUS
     Dosage: 0.75 MG, WEEKLY (1/W)
     Route: 058
     Dates: start: 202007
  2. IBERET [FERROUS SULFATE;VITAMINS NOS] [Concomitant]
     Indication: PRODUCT USED FOR UNKNOWN INDICATION

REACTIONS (7)
  - Intervertebral disc protrusion [Unknown]
  - Pain in extremity [Unknown]
  - Decreased gait velocity [Unknown]
  - Back disorder [Unknown]
  - Neoplasm malignant [Unknown]
  - Nerve compression [Unknown]
  - Back pain [Unknown]

NARRATIVE: CASE EVENT DATE: 202010
